FAERS Safety Report 5480386-X (Version None)
Quarter: 2007Q4

REPORT INFORMATION
  Report Type: 
  Country: None (occurrence: None)
  Receive Date: 20071004
  Receipt Date: 20071004
  Transmission Date: 20080405
  Serious: Yes (Hospitalization)
  Sender: FDA-Public Use
  Company Number: None

PATIENT
  Age: 59 Year
  Sex: Male
  Weight: 85 kg

DRUGS (16)
  1. PRIMAXIN [Suspect]
     Indication: LUNG INFECTION PSEUDOMONAL
     Dosage: 500 MG  Q6H   IV
     Route: 042
     Dates: start: 20070930, end: 20071001
  2. TRAMADOL HCL [Suspect]
     Indication: PAIN
     Dosage: 50 MG  TID/PRN  PO
     Route: 048
  3. ACETAMINOPHEN [Concomitant]
  4. MAALOX [Concomitant]
  5. BACLOFEN [Concomitant]
  6. LOVENOX [Concomitant]
  7. FAMOTIDINE [Concomitant]
  8. HYDROMORPHONE HCL [Concomitant]
  9. LORAZEPAM [Concomitant]
  10. MICONAZOLE [Concomitant]
  11. PSYLLIUM [Concomitant]
  12. TIZANIDINE HCL [Concomitant]
  13. ZOLPIDEM TARTRATE [Concomitant]
  14. ALBUTEROL [Concomitant]
  15. IPRATROPIUM BROMIDE [Concomitant]
  16. AZITHROMYCIN [Concomitant]

REACTIONS (1)
  - CONVULSION [None]
